FAERS Safety Report 6580041-9 (Version None)
Quarter: 2010Q1

REPORT INFORMATION
  Report Type: 
  Country: None (occurrence: None)
  Receive Date: 20100212
  Receipt Date: 20100208
  Transmission Date: 20100710
  Serious: Yes (Other)
  Sender: FDA-Public Use
  Company Number: JP-MERCK-1001USA02848

PATIENT
  Age: 50 Year
  Sex: Male

DRUGS (3)
  1. EMEND [Suspect]
     Indication: PROPHYLAXIS OF NAUSEA AND VOMITING
     Route: 048
     Dates: start: 20100114, end: 20100115
  2. EMEND [Suspect]
     Route: 048
     Dates: start: 20100113, end: 20100113
  3. DEPAKENE [Concomitant]
     Route: 065

REACTIONS (1)
  - CONVULSION [None]
